FAERS Safety Report 11716447 (Version 2)
Quarter: 2015Q4

REPORT INFORMATION
  Report Type: Spontaneous
  Country: CH (occurrence: DE)
  Receive Date: 20151109
  Receipt Date: 20151116
  Transmission Date: 20160304
  Serious: Yes (Death, Hospitalization)
  Sender: FDA-Public Use
  Company Number: CH-LPDUSPRD-20150880

PATIENT
  Age: 95 Year
  Sex: Female
  Weight: 66 kg

DRUGS (5)
  1. ASPIRIN. [Concomitant]
     Active Substance: ASPIRIN
     Dosage: BREAK
     Route: 065
  2. TORASEMID [Concomitant]
     Active Substance: TORSEMIDE
     Dosage: 1 IN THE MORNING (20)
     Route: 065
  3. FERINJECT [Suspect]
     Active Substance: FERRIC CARBOXYMALTOSE
     Dosage: 1000 MG, 1 IN1 TOTAL IN 30 MIN
     Route: 041
     Dates: start: 20151001, end: 20151001
  4. DELIX [Concomitant]
     Active Substance: RAMIPRIL
     Dosage: 1 DF (1 DF AT NIGHT)
     Route: 065
  5. BELOC ZOK [Concomitant]
     Active Substance: METOPROLOL SUCCINATE
     Dosage: 0.5, 1/2-0-0
     Route: 065

REACTIONS (3)
  - Pulmonary oedema [Fatal]
  - Cardiac failure [Fatal]
  - Off label use [Unknown]

NARRATIVE: CASE EVENT DATE: 2015
